FAERS Safety Report 9890740 (Version 2)
Quarter: 2014Q1

REPORT INFORMATION
  Report Type: Spontaneous
  Country: CA (occurrence: CA)
  Receive Date: 20140212
  Receipt Date: 20140212
  Transmission Date: 20141002
  Serious: Yes (Other)
  Sender: FDA-Public Use
  Company Number: CA-AMGEN-CANSP2014001269

PATIENT
  Age: 74 Year
  Sex: Female
  Weight: 43.54 kg

DRUGS (10)
  1. PROLIA [Suspect]
     Indication: OSTEOPOROSIS POSTMENOPAUSAL
     Dosage: 60 MG, Q6MO
     Route: 058
     Dates: start: 20130509, end: 20131008
  2. CITRACAL                           /00751520/ [Concomitant]
     Indication: OSTEOPOROSIS
     Dosage: UNK UNK, TID
     Route: 048
     Dates: start: 2011
  3. CITALOPRAM [Concomitant]
     Dosage: UNK
     Route: 065
     Dates: start: 2012
  4. PANTOPRAZOLE [Concomitant]
  5. TRAMACET [Concomitant]
     Dosage: UNK
     Dates: start: 2009
  6. VITAMIN D                          /00107901/ [Concomitant]
  7. VALIUM [Concomitant]
     Indication: OSTEOPOROSIS
  8. ALENDRONATE [Concomitant]
     Indication: OSTEOPOROSIS
  9. PREMARIN [Concomitant]
     Indication: OSTEOPOROSIS
  10. IBANDRONATE [Concomitant]
     Indication: OSTEOPOROSIS

REACTIONS (4)
  - Rash pruritic [Recovered/Resolved]
  - Hypersensitivity [Unknown]
  - Dyspnoea [Unknown]
  - Erythema [Unknown]
